FAERS Safety Report 5194702-X (Version None)
Quarter: 2006Q4

REPORT INFORMATION
  Report Type: 
  Country: None (occurrence: None)
  Receive Date: 20061229
  Receipt Date: 20060710
  Transmission Date: 20070319
  Serious: Yes (Hospitalization)
  Sender: FDA-Public Use
  Company Number: PHRM2006FR02017

PATIENT
  Age: 71 Year
  Sex: Male

DRUGS (5)
  1. TEGRETOL [Suspect]
     Indication: FACIAL NEURALGIA
     Dosage: UNK, UNK
     Route: 048
     Dates: start: 20041102, end: 20050401
  2. TEGRETOL [Suspect]
     Route: 048
     Dates: start: 20060330, end: 20060630
  3. ACTONEL [Concomitant]
     Route: 048
  4. DIGOXIN [Concomitant]
     Route: 048
  5. SINTROM [Concomitant]
     Route: 048

REACTIONS (16)
  - ASTHENIA [None]
  - BACTERIA URINE [None]
  - BETA 2 MICROGLOBULIN INCREASED [None]
  - C-REACTIVE PROTEIN INCREASED [None]
  - DYSAESTHESIA [None]
  - GENERAL PHYSICAL HEALTH DETERIORATION [None]
  - GRANULOCYTE COUNT INCREASED [None]
  - INFLAMMATION [None]
  - LEUKOCYTOSIS [None]
  - NIGHT SWEATS [None]
  - PYELONEPHRITIS [None]
  - PYREXIA [None]
  - RED BLOOD CELL SEDIMENTATION RATE INCREASED [None]
  - SERUM FERRITIN INCREASED [None]
  - TEMPORAL ARTERITIS [None]
  - WEIGHT DECREASED [None]
